FAERS Safety Report 18332183 (Version 1)
Quarter: 2020Q3

REPORT INFORMATION
  Report Type: Other
  Country: US (occurrence: US)
  Receive Date: 20200930
  Receipt Date: 20200930
  Transmission Date: 20201103
  Serious: No
  Sender: FDA-Public Use
  Company Number: US-TRIS PHARMA, INC.-20US009089

PATIENT

DRUGS (1)
  1. HYDROCODONE + APAP [Suspect]
     Active Substance: ACETAMINOPHEN\HYDROCODONE BITARTRATE
     Indication: BACK PAIN
     Dosage: UNK UNK, Q 6 HR
     Route: 065
     Dates: start: 20200825

REACTIONS (4)
  - Drug withdrawal syndrome [Unknown]
  - Therapeutic response shortened [Unknown]
  - Therapeutic product effect delayed [Unknown]
  - Drug ineffective [Unknown]
